FAERS Safety Report 14702408 (Version 1)
Quarter: 2018Q2

REPORT INFORMATION
  Report Type: Spontaneous
  Country: FR (occurrence: FR)
  Receive Date: 20180401
  Receipt Date: 20180401
  Transmission Date: 20180711
  Serious: Yes (Other)
  Sender: FDA-Public Use
  Company Number: PHHY2017FR202015

PATIENT
  Age: 46 Year
  Sex: Male

DRUGS (21)
  1. CORTANCYL [Concomitant]
     Active Substance: PREDNISONE
     Indication: IMMUNOSUPPRESSION
     Dosage: 30, UNK, QD 30 (UNIT NOT PROVIDED), ONCE DAILY
     Route: 065
     Dates: start: 20170527, end: 20170606
  2. CORTANCYL [Concomitant]
     Active Substance: PREDNISONE
     Dosage: 35 UNK, QD 35 (UNIT NOT PROVIDED), ONCE DAILY
     Route: 065
     Dates: start: 20170520, end: 20170526
  3. CELLCEPT [Concomitant]
     Active Substance: MYCOPHENOLATE MOFETIL\MYCOPHENOLATE MOFETIL HYDROCHLORIDE
     Indication: IMMUNOSUPPRESSION
     Dosage: 1500 UNK, QD 1500 (UNIT NOT PROVIDED), ONCE DAILY
     Route: 065
     Dates: start: 20170825
  4. CORTANCYL [Concomitant]
     Active Substance: PREDNISONE
     Dosage: 10 UNK, QD 10 (UNIT NOT PROVIDED), ONCE DAILY
     Route: 065
     Dates: start: 20170719, end: 20170809
  5. TACROLIMUS. [Suspect]
     Active Substance: TACROLIMUS
     Dosage: 8.5 MG, QD
     Route: 048
     Dates: start: 20170524
  6. TACROLIMUS. [Suspect]
     Active Substance: TACROLIMUS
     Dosage: 8 MG, QD
     Route: 048
     Dates: start: 20170603
  7. TACROLIMUS. [Suspect]
     Active Substance: TACROLIMUS
     Dosage: 11.5 MG, QD
     Route: 048
     Dates: start: 20170628
  8. CORTANCYL [Concomitant]
     Active Substance: PREDNISONE
     Dosage: 17.5 UNK, QD 17.5 (UNIT NOT PROVIDED), ONCE DAILY
     Route: 065
     Dates: start: 20170621, end: 20170627
  9. TACROLIMUS. [Suspect]
     Active Substance: TACROLIMUS
     Dosage: 11 MG, QD
     Route: 048
     Dates: start: 20170614
  10. CELLCEPT [Concomitant]
     Active Substance: MYCOPHENOLATE MOFETIL\MYCOPHENOLATE MOFETIL HYDROCHLORIDE
     Dosage: 2000 UNK, QD 2000 (UNIT NOT PROVIDED), ONCE DAILY
     Route: 065
     Dates: start: 20170518, end: 20170622
  11. CORTANCYL [Concomitant]
     Active Substance: PREDNISONE
     Dosage: 7.5 UNK, QD 7.5 (UNIT NOT PROVIDED), ONCE DAILY
     Route: 065
     Dates: start: 20170810, end: 20170919
  12. CELLCEPT [Concomitant]
     Active Substance: MYCOPHENOLATE MOFETIL\MYCOPHENOLATE MOFETIL HYDROCHLORIDE
     Dosage: 1000 UNK, QD 1000 (UNIT NOT PROVIDED), ONCE DAILY
     Route: 065
     Dates: start: 20170623, end: 20170824
  13. TACROLIMUS. [Suspect]
     Active Substance: TACROLIMUS
     Dosage: 12 MG, QD
     Route: 048
     Dates: start: 20170824
  14. TACROLIMUS. [Suspect]
     Active Substance: TACROLIMUS
     Dosage: 11.5 MG, QD
     Route: 048
     Dates: start: 20170920
  15. CORTANCYL [Concomitant]
     Active Substance: PREDNISONE
     Dosage: 20 UNK, QD 20 (UNIT NOT PROVIDED), ONCE DAILY
     Route: 065
     Dates: start: 20170614, end: 20170620
  16. TACROLIMUS. [Suspect]
     Active Substance: TACROLIMUS
     Indication: RENAL TRANSPLANT
     Dosage: 8 MG, QD
     Route: 048
     Dates: start: 20170518
  17. CORTANCYL [Concomitant]
     Active Substance: PREDNISONE
     Dosage: 40 UNK, QD 40 (UNIT NOT PROVIDED), ONCE DAILY
     Route: 065
     Dates: start: 20170518, end: 20170519
  18. CORTANCYL [Concomitant]
     Active Substance: PREDNISONE
     Dosage: 25 UNK, QD 25 (UNIT NOT PROVIDED), ONCE DAILY
     Route: 065
     Dates: start: 20170607, end: 20170613
  19. CORTANCYL [Concomitant]
     Active Substance: PREDNISONE
     Dosage: 15 UNK, QD 15 (UNIT NOT PROVIDED), ONCE DAILY
     Route: 065
     Dates: start: 20170628, end: 20170704
  20. CORTANCYL [Concomitant]
     Active Substance: PREDNISONE
     Dosage: 12.5 UNK, QD 12.5 (UNIT NOT PROVIDED), ONCE DAILY
     Route: 065
     Dates: start: 20170705, end: 20170718
  21. CORTANCYL [Concomitant]
     Active Substance: PREDNISONE
     Dosage: 5 UNK, QD 5 (UNIT NOT PROVIDED), ONCE DAILY
     Route: 065
     Dates: start: 20170920

REACTIONS (3)
  - Pyelonephritis [Recovered/Resolved]
  - Hypercholesterolaemia [Not Recovered/Not Resolved]
  - Cytomegalovirus infection [Not Recovered/Not Resolved]

NARRATIVE: CASE EVENT DATE: 20170809
